FAERS Safety Report 7747233 (Version 4)
Quarter: 2013Q3

REPORT INFORMATION
  Report Type: Spontaneous
  Country: US (occurrence: US)
  Receive Date: 20110104
  Receipt Date: 20130906
  Transmission Date: 20140515
  Serious: Yes (Hospitalization, Other)
  Sender: FDA-Public Use
  Company Number: US-BAYER-2010-009248

PATIENT
  Age: 45 Year
  Sex: Female
  Weight: 79 kg

DRUGS (3)
  1. YAZ [Suspect]
     Indication: ACNE
     Dosage: UNK
     Dates: start: 200610, end: 200712
  2. YASMIN [Suspect]
     Indication: ACNE
     Dosage: UNK
     Dates: start: 200510, end: 200712
  3. OCELLA [Suspect]
     Indication: ACNE
     Dosage: UNK

REACTIONS (7)
  - Intestinal infarction [None]
  - Intestinal ischaemia [None]
  - Cholelithiasis [None]
  - Depression [None]
  - Injury [None]
  - Pain [None]
  - Gallbladder disorder [None]
